FAERS Safety Report 6290795-7 (Version None)
Quarter: 2009Q3

REPORT INFORMATION
  Report Type: 
  Country: None (occurrence: None)
  Receive Date: 20090729
  Receipt Date: 20090729
  Transmission Date: 20100115
  Serious: No
  Sender: FDA-Public Use
  Company Number: None

PATIENT
  Age: 27 Year
  Sex: Male

DRUGS (2)
  1. BUPROPION HCL [Suspect]
     Indication: BIPOLAR I DISORDER
     Dosage: 300 MG / PER DAY / ORAL
     Route: 048
     Dates: start: 20090424
  2. OXCARBAZEPINE [Concomitant]

REACTIONS (3)
  - TENDERNESS [None]
  - TESTICULAR PAIN [None]
  - TESTICULAR SWELLING [None]
